FAERS Safety Report 9804430 (Version 2)
Quarter: 2014Q1

REPORT INFORMATION
  Report Type: Spontaneous
  Country: US (occurrence: US)
  Receive Date: 20140108
  Receipt Date: 20140113
  Transmission Date: 20141002
  Serious: Yes (Hospitalization)
  Sender: FDA-Public Use
  Company Number: PHHY2014US000990

PATIENT
  Age: 51 Year
  Sex: Female

DRUGS (1)
  1. AMOXICILLIN [Suspect]
     Indication: OTITIS MEDIA

REACTIONS (9)
  - Acquired haemophilia [Unknown]
  - Ecchymosis [Unknown]
  - Tongue haematoma [Unknown]
  - Swollen tongue [Unknown]
  - Dyspnoea [Unknown]
  - Protrusion tongue [Unknown]
  - Upper airway obstruction [Unknown]
  - Infusion site haemorrhage [Unknown]
  - Angioedema [Unknown]
